FAERS Safety Report 4964667-1 (Version None)
Quarter: 2006Q1

REPORT INFORMATION
  Report Type: 
  Country: None (occurrence: None)
  Receive Date: 20060331
  Receipt Date: 20060316
  Transmission Date: 20060701
  Serious: No
  Sender: FDA-Public Use
  Company Number: CA200603006031

PATIENT
  Age: 63 Year
  Sex: Male

DRUGS (8)
  1. ZYPREXA [Suspect]
     Dosage: 5 MG, DAILY (1/D),
  2. COLACE              (DOCUSATE SODIUM) CAPSULE [Concomitant]
  3. DESIPRAMINE HCL [Concomitant]
  4. EFFEXOR [Concomitant]
  5. FLOMAX [Concomitant]
  6. PANTOPRAZOLE SODIUM [Concomitant]
  7. SENOKOT (SENNA FRUIT) TABLET [Concomitant]
  8. WELLBUTRIN                 (BUPROPIPION HYDROCHLORIDE) [Concomitant]

REACTIONS (4)
  - ANAEMIA [None]
  - DECREASED APPETITE [None]
  - HAEMOGLOBIN DECREASED [None]
  - PANCYTOPENIA [None]
